FAERS Safety Report 8549445-9 (Version None)
Quarter: 2012Q3

REPORT INFORMATION
  Report Type: 
  Country: None (occurrence: None)
  Receive Date: 20120730
  Receipt Date: 20120614
  Transmission Date: 20120928
  Serious: Yes (Death, Other)
  Sender: FDA-Public Use
  Company Number: ES-BAYER-2012-056010

PATIENT
  Age: 55 Year
  Sex: Male

DRUGS (8)
  1. ATENOLOL [Concomitant]
     Indication: HYPERTENSION
     Dosage: 100 MG, QD
  2. CANDESARTAN [Concomitant]
     Indication: HYPERTENSION
     Dosage: 8 MG, QD
     Route: 048
     Dates: start: 20080101
  3. ASPIRIN [Suspect]
     Indication: ESSENTIAL THROMBOCYTHAEMIA
     Dosage: 100 MG, QD
     Route: 048
     Dates: start: 20060505
  4. ACENOCUMAROL [Suspect]
     Indication: ESSENTIAL THROMBOCYTHAEMIA
     Dosage: 3 MG, QD
     Route: 048
     Dates: start: 19960523
  5. HYDROXYUREA [Suspect]
     Indication: ESSENTIAL THROMBOCYTHAEMIA
     Dosage: 500 MG, BID
     Route: 048
     Dates: start: 19971205, end: 20051009
  6. ANAGRELIDE HYDROCHLORIDE [Suspect]
     Indication: ESSENTIAL THROMBOCYTHAEMIA
     Dosage: 1 MG, QD
     Route: 048
     Dates: start: 20051010
  7. GLICLAZIDE [Concomitant]
     Indication: DIABETES MELLITUS
     Dosage: 30 MG, QD
     Route: 048
  8. TAMSULOSIN HCL [Concomitant]
     Indication: BENIGN PROSTATIC HYPERPLASIA
     Dosage: 0.4 MG, QD
     Route: 048

REACTIONS (6)
  - RESPIRATORY DEPRESSION [None]
  - ARRHYTHMIA [None]
  - SHOCK [None]
  - TORSADE DE POINTES [None]
  - ELECTROCARDIOGRAM QT PROLONGED [None]
  - CARDIO-RESPIRATORY ARREST [None]
